FAERS Safety Report 14942255 (Version 1)
Quarter: 2018Q2

REPORT INFORMATION
  Report Type: Spontaneous
  Country: NL (occurrence: NL)
  Receive Date: 20180528
  Receipt Date: 20180528
  Transmission Date: 20180711
  Serious: Yes (Other)
  Sender: FDA-Public Use
  Company Number: NL-CONCORDIA PHARMACEUTICALS INC.-E2B_00011907

PATIENT
  Sex: Female

DRUGS (1)
  1. PREDNISOLONE. [Suspect]
     Active Substance: PREDNISOLONE

REACTIONS (2)
  - Drug hypersensitivity [Unknown]
  - Rash generalised [Unknown]
